FAERS Safety Report 9264393 (Version 2)
Quarter: 2013Q2

REPORT INFORMATION
  Report Type: Spontaneous
  Country: FR (occurrence: FR)
  Receive Date: 20130430
  Receipt Date: 20130607
  Transmission Date: 20140414
  Serious: Yes (Hospitalization)
  Sender: FDA-Public Use
  Company Number: FR-B.I. PHARMACEUTICALS,INC./RIDGEFIELD-2013-FF-01263FF

PATIENT
  Age: 7 Decade
  Sex: Female

DRUGS (6)
  1. PRADAXA [Suspect]
     Indication: ATRIAL FIBRILLATION
  2. METOJECT [Concomitant]
     Indication: POLYARTHRITIS
  3. MEDROL [Concomitant]
     Indication: POLYARTHRITIS
  4. STAGID [Concomitant]
     Indication: TYPE 2 DIABETES MELLITUS
  5. SOTALOL [Concomitant]
  6. BI-PRETERAX [Concomitant]

REACTIONS (1)
  - Skin necrosis [Not Recovered/Not Resolved]
